FAERS Safety Report 7612347-6 (Version None)
Quarter: 2011Q3

REPORT INFORMATION
  Report Type: 
  Country: None (occurrence: None)
  Receive Date: 20110715
  Receipt Date: 20110705
  Transmission Date: 20111222
  Serious: Yes (Other)
  Sender: FDA-Public Use
  Company Number: US-AMGEN-USASP2011034200

PATIENT
  Age: 67 Year
  Sex: Female

DRUGS (1)
  1. ENBREL [Suspect]
     Indication: RHEUMATOID ARTHRITIS
     Dosage: 50 MG, QWK
     Dates: start: 20110604, end: 20110625

REACTIONS (12)
  - NAUSEA [None]
  - EAR PAIN [None]
  - PRURITUS [None]
  - MUSCULAR WEAKNESS [None]
  - SINUS HEADACHE [None]
  - MALAISE [None]
  - INCREASED TENDENCY TO BRUISE [None]
  - DIPLOPIA [None]
  - HEADACHE [None]
  - LYMPH NODE PAIN [None]
  - DRUG HYPERSENSITIVITY [None]
  - OROPHARYNGEAL PAIN [None]
